FAERS Safety Report 8419448-3 (Version None)
Quarter: 2012Q2

REPORT INFORMATION
  Report Type: 
  Country: None (occurrence: None)
  Receive Date: 20120607
  Receipt Date: 20120601
  Transmission Date: 20120825
  Serious: Yes (Hospitalization)
  Sender: FDA-Public Use
  Company Number: JP-GLAXOSMITHKLINE-B0802598A

PATIENT
  Sex: Male

DRUGS (7)
  1. DUTASTERIDE [Suspect]
     Indication: BENIGN PROSTATIC HYPERPLASIA
     Dosage: .5MG PER DAY
     Route: 048
     Dates: start: 20110715, end: 20111113
  2. FLIVASTATIN SODIUM [Suspect]
     Indication: PRODUCT USED FOR UNKNOWN INDICATION
     Dosage: 75MG PER DAY
     Route: 048
     Dates: start: 20110708, end: 20111108
  3. PLETAL [Concomitant]
     Dosage: 200MG PER DAY
     Route: 048
     Dates: start: 20090508
  4. TENORMIN [Concomitant]
     Dosage: 25MG PER DAY
     Route: 048
     Dates: end: 20111128
  5. PROCYLIN [Concomitant]
     Dosage: 80MCG PER DAY
     Route: 048
     Dates: start: 20091110
  6. TRANDOLAPRIL [Concomitant]
     Dosage: .5MG PER DAY
     Route: 048
     Dates: start: 20070804, end: 20111201
  7. ASPIRIN [Concomitant]
     Dosage: 200MG PER DAY
     Route: 048
     Dates: start: 20091023

REACTIONS (12)
  - CELL MARKER INCREASED [None]
  - ASTHENIA [None]
  - CHEST X-RAY ABNORMAL [None]
  - COMPUTERISED TOMOGRAM THORAX ABNORMAL [None]
  - RALES [None]
  - C-REACTIVE PROTEIN INCREASED [None]
  - INTERSTITIAL LUNG DISEASE [None]
  - DYSPNOEA EXERTIONAL [None]
  - LYMPHOCYTE STIMULATION TEST POSITIVE [None]
  - BLOOD LACTATE DEHYDROGENASE INCREASED [None]
  - CSF CELL COUNT INCREASED [None]
  - DIZZINESS [None]
